FAERS Safety Report 8287020-4 (Version None)
Quarter: 2012Q2

REPORT INFORMATION
  Report Type: 
  Country: None (occurrence: None)
  Receive Date: 20120413
  Receipt Date: 20120411
  Transmission Date: 20120825
  Serious: Yes (Hospitalization)
  Sender: FDA-Public Use
  Company Number: GB-MERCK-1204GBR00038

PATIENT
  Age: 76 Year
  Sex: Female
  Weight: 55 kg

DRUGS (8)
  1. LANSOPRAZOLE [Concomitant]
     Route: 048
     Dates: end: 20120305
  2. CIPROFLOXACIN [Suspect]
     Indication: LIVER ABSCESS
     Route: 048
     Dates: start: 20120216, end: 20120305
  3. RAMIPRIL [Suspect]
     Route: 048
     Dates: end: 20120305
  4. ASPIRIN [Concomitant]
     Route: 048
     Dates: end: 20120305
  5. FUROSEMIDE [Concomitant]
     Route: 048
     Dates: end: 20120305
  6. FLUTICASONE PROPIONATE AND SALMETEROL XINAFOATE [Concomitant]
     Route: 065
  7. TIOTROPIUM BROMIDE [Concomitant]
     Route: 065
  8. ZOCOR [Suspect]
     Route: 048
     Dates: end: 20120305

REACTIONS (2)
  - RENAL FAILURE ACUTE [None]
  - DEHYDRATION [None]
